FAERS Safety Report 22184014 (Version 1)
Quarter: 2023Q2

REPORT INFORMATION
  Report Type: Spontaneous
  Country: CH (occurrence: CH)
  Receive Date: 20230407
  Receipt Date: 20230407
  Transmission Date: 20230722
  Serious: Yes (Other)
  Sender: FDA-Public Use
  Company Number: CH-JNJFOC-20230304487

PATIENT
  Age: 4 Decade
  Sex: Male
  Weight: 73 kg

DRUGS (5)
  1. SIMPONI [Suspect]
     Active Substance: GOLIMUMAB
     Indication: Spondyloarthropathy
     Route: 058
     Dates: start: 20211119
  2. LUVIT [Concomitant]
     Indication: Unevaluable event
     Dosage: 1-2000IE/DAY
     Dates: start: 20211203
  3. PREDNISOLONE [Concomitant]
     Active Substance: PREDNISOLONE
     Indication: Arthritis
     Dosage: 5-20 MG
     Dates: start: 20211003, end: 20211213
  4. LODINE [Concomitant]
     Active Substance: ETODOLAC
     Indication: Arthritis
     Dosage: 300/600MG
     Dates: start: 20211025
  5. PANTOPRAZOLE [Concomitant]
     Active Substance: PANTOPRAZOLE
     Dates: start: 20211109

REACTIONS (2)
  - Asthma [Recovering/Resolving]
  - Allergy to animal [Not Recovered/Not Resolved]

NARRATIVE: CASE EVENT DATE: 20220201
